FAERS Safety Report 17524084 (Version 1)
Quarter: 2020Q1

REPORT INFORMATION
  Report Type: Spontaneous
  Country: US (occurrence: US)
  Receive Date: 20200302
  Receipt Date: 20200302
  Transmission Date: 20200409
  Serious: No
  Sender: FDA-Public Use
  Company Number: None

PATIENT
  Age: 81 Year
  Sex: Male

DRUGS (1)
  1. ACTEMRA ACTPEN [Suspect]
     Active Substance: TOCILIZUMAB
     Dosage: ?          OTHER STRENGTH:162 MG/0.9 ML;?
     Route: 058
     Dates: start: 201804

REACTIONS (1)
  - Device malfunction [None]

NARRATIVE: CASE EVENT DATE: 20200302
